FAERS Safety Report 18376767 (Version 2)
Quarter: 2020Q4

REPORT INFORMATION
  Report Type: Report from Study
  Country: NO (occurrence: NO)
  Receive Date: 20201013
  Receipt Date: 20201016
  Transmission Date: 20210114
  Serious: Yes (Hospitalization)
  Sender: FDA-Public Use
  Company Number: NO-TAKEDA-2020TUS042464

PATIENT
  Sex: Male

DRUGS (3)
  1. VEDOLIZUMAB [Suspect]
     Active Substance: VEDOLIZUMAB
     Indication: INFLAMMATORY BOWEL DISEASE
     Dosage: UNK
     Route: 042
     Dates: start: 20190328
  2. MESALAZINE [Concomitant]
     Active Substance: MESALAMINE
     Dosage: UNK
  3. PREDNISOLONE. [Concomitant]
     Active Substance: PREDNISOLONE
     Dosage: UNK

REACTIONS (1)
  - Anal abscess [Not Recovered/Not Resolved]

NARRATIVE: CASE EVENT DATE: 20200612
